FAERS Safety Report 16676306 (Version 1)
Quarter: 2019Q3

REPORT INFORMATION
  Report Type: Report from Study
  Country: None (occurrence: AT)
  Receive Date: 20190807
  Receipt Date: 20190807
  Transmission Date: 20191004
  Serious: Yes (Other)
  Sender: FDA-Public Use
  Company Number: AT-ABBVIE-19K-009-2872574-00

PATIENT
  Sex: Male

DRUGS (1)
  1. DUODOPA [Suspect]
     Active Substance: CARBIDOPA\LEVODOPA
     Indication: PARKINSON^S DISEASE
     Dosage: MD: 8ML, CR DAYTIME: 4.5ML, ED: 2ML
     Route: 050
     Dates: start: 20170404

REACTIONS (3)
  - Drug abuse [Recovering/Resolving]
  - Agitation [Unknown]
  - On and off phenomenon [Unknown]
